FAERS Safety Report 5580103-9 (Version None)
Quarter: 2008Q1

REPORT INFORMATION
  Report Type: 
  Country: None (occurrence: None)
  Receive Date: 20080103
  Receipt Date: 20071225
  Transmission Date: 20080703
  Serious: Yes (Death)
  Sender: FDA-Public Use
  Company Number: JP-NOVOPROD-270546

PATIENT

DRUGS (1)
  1. NOVOSEVEN [Suspect]
     Indication: INTRA-ABDOMINAL HAEMORRHAGE
     Dosage: 4.8 MG, QD
     Route: 042

REACTIONS (1)
  - DRUG INEFFECTIVE [None]
